FAERS Safety Report 11387537 (Version 1)
Quarter: 2015Q3

REPORT INFORMATION
  Report Type: Spontaneous
  Country: US (occurrence: US)
  Receive Date: 20150817
  Receipt Date: 20150817
  Transmission Date: 20151125
  Serious: No
  Sender: FDA-Public Use
  Company Number: US-BAYER-2015-400906

PATIENT
  Age: 10 Year
  Sex: Male
  Weight: 30.84 kg

DRUGS (6)
  1. NASACORT [Concomitant]
     Active Substance: TRIAMCINOLONE ACETONIDE
  2. ALEVE [Suspect]
     Active Substance: NAPROXEN SODIUM
     Indication: PYREXIA
  3. ALBUTEROL. [Concomitant]
     Active Substance: ALBUTEROL
  4. VIVANT [Concomitant]
  5. ALEVE [Suspect]
     Active Substance: NAPROXEN SODIUM
     Indication: HEADACHE
     Dosage: 1 DF, PRN
     Route: 048
     Dates: start: 2014
  6. SINGULAIR [Concomitant]
     Active Substance: MONTELUKAST SODIUM

REACTIONS (1)
  - Product use issue [Unknown]

NARRATIVE: CASE EVENT DATE: 2014
